FAERS Safety Report 5371689-8 (Version None)
Quarter: 2007Q2

REPORT INFORMATION
  Report Type: 
  Country: None (occurrence: None)
  Receive Date: 20070625
  Receipt Date: 20070608
  Transmission Date: 20071010
  Serious: Yes (Death, Hospitalization)
  Sender: FDA-Public Use
  Company Number: 157320ISR

PATIENT
  Age: 62 Year
  Sex: Male

DRUGS (3)
  1. VINCRISTINE [Suspect]
     Indication: METASTASIS
  2. CYCLOPHOSPHAMIDE [Suspect]
     Indication: METASTASIS
  3. DOXORUBICIN HCL [Suspect]
     Indication: METASTASIS

REACTIONS (11)
  - CITROBACTER INFECTION [None]
  - ENTEROBACTER INFECTION [None]
  - ENTEROCOCCAL INFECTION [None]
  - FLATULENCE [None]
  - HYPOTENSION [None]
  - PERITONITIS [None]
  - PNEUMATOSIS INTESTINALIS [None]
  - SEPTIC SHOCK [None]
  - SPLENIC INFARCTION [None]
  - TACHYCARDIA [None]
  - TACHYPNOEA [None]
